FAERS Safety Report 4896967-8 (Version None)
Quarter: 2006Q1

REPORT INFORMATION
  Report Type: 
  Country: None (occurrence: None)
  Receive Date: 20060127
  Receipt Date: 20060109
  Transmission Date: 20060701
  Serious: Yes (Other)
  Sender: FDA-Public Use
  Company Number: PAR_0476_2006

PATIENT
  Age: 63 Year
  Sex: Male

DRUGS (3)
  1. ISOPTIN SR [Suspect]
     Dosage: 240 MG QDAY PO
     Route: 048
     Dates: start: 20010917, end: 20021003
  2. GRISEOFULVIN [Suspect]
     Dosage: DF
     Dates: start: 20020903, end: 20020927
  3. ROFECOXIB [Suspect]
     Indication: OSTEOARTHRITIS
     Dosage: 25 MG QDAY PO
     Route: 048
     Dates: start: 20020924, end: 20021003

REACTIONS (5)
  - ACUTE MYOCARDIAL INFARCTION [None]
  - ASPARTATE AMINOTRANSFERASE INCREASED [None]
  - BLOOD CREATININE INCREASED [None]
  - CORONARY ARTERY OCCLUSION [None]
  - DRUG INEFFECTIVE [None]
